FAERS Safety Report 20786629 (Version 1)
Quarter: 2022Q2

REPORT INFORMATION
  Report Type: Spontaneous
  Country: DE (occurrence: DE)
  Receive Date: 20220505
  Receipt Date: 20220505
  Transmission Date: 20220720
  Serious: Yes (Hospitalization, Other)
  Sender: FDA-Public Use
  Company Number: DE-CADRBFARM-2022290989

PATIENT
  Age: 58 Year
  Sex: Female
  Weight: 40 kg

DRUGS (2)
  1. VENLAFAXINE [Interacting]
     Active Substance: VENLAFAXINE HYDROCHLORIDE
     Indication: Product used for unknown indication
     Dosage: UNK
     Route: 065
  2. TERIPARATIDE [Interacting]
     Active Substance: TERIPARATIDE
     Indication: Spinal fracture
     Dosage: PRESET DOSE FOR DAILY INJECTION; APPLICATION UNCHANGED PLANNED UNTIL FEBRUARY 29TH, 2024
     Route: 058
     Dates: start: 20220302

REACTIONS (8)
  - Palpitations [Recovering/Resolving]
  - Dizziness [Recovering/Resolving]
  - Nausea [Recovering/Resolving]
  - Dyspnoea [Recovering/Resolving]
  - Blood pressure decreased [Recovering/Resolving]
  - Angina pectoris [Recovering/Resolving]
  - Asthenia [Recovering/Resolving]
  - Drug interaction [Unknown]

NARRATIVE: CASE EVENT DATE: 20220301
